FAERS Safety Report 15121363 (Version 2)
Quarter: 2018Q3

REPORT INFORMATION
  Report Type: Spontaneous
  Country: US (occurrence: US)
  Receive Date: 20180709
  Receipt Date: 20180709
  Transmission Date: 20181010
  Serious: Yes (Other)
  Sender: FDA-Public Use
  Company Number: US-CELGENEUS-USA-20180610646

PATIENT
  Age: 74 Year
  Sex: Male
  Weight: 64.01 kg

DRUGS (3)
  1. IDHIFA [Suspect]
     Active Substance: ENASIDENIB MESYLATE
     Indication: ACUTE MYELOID LEUKAEMIA
     Dosage: 100 MILLIGRAM
     Route: 048
     Dates: start: 20171222
  2. FISH OIL [Concomitant]
     Active Substance: FISH OIL
     Indication: PRODUCT USED FOR UNKNOWN INDICATION
     Dosage: 100?150MG
     Route: 048
  3. DILTIAZEM. [Concomitant]
     Active Substance: DILTIAZEM
     Indication: PRODUCT USED FOR UNKNOWN INDICATION
     Dosage: 120 MILLIGRAM
     Route: 065

REACTIONS (11)
  - Neutrophil count decreased [Unknown]
  - Iron overload [Unknown]
  - White blood cell count decreased [Unknown]
  - Weight decreased [Unknown]
  - Anaemia [Unknown]
  - Migraine [Unknown]
  - Depression [Unknown]
  - Asthenia [Unknown]
  - Pyrexia [Unknown]
  - Decreased appetite [Unknown]
  - Nasopharyngitis [Unknown]

NARRATIVE: CASE EVENT DATE: 20180613
